FAERS Safety Report 16145151 (Version 6)
Quarter: 2020Q4

REPORT INFORMATION
  Report Type: Report from Study
  Country: US (occurrence: US)
  Receive Date: 20190402
  Receipt Date: 20201015
  Transmission Date: 20210113
  Serious: No
  Sender: FDA-Public Use
  Company Number: PHEH2019US014098

PATIENT
  Sex: Female

DRUGS (1)
  1. COSENTYX [Suspect]
     Active Substance: SECUKINUMAB
     Indication: PRODUCT USED FOR UNKNOWN INDICATION
     Dosage: UNK
     Route: 065

REACTIONS (8)
  - Bone pain [Unknown]
  - Arthritis [Unknown]
  - Pain [Unknown]
  - Arthralgia [Unknown]
  - Condition aggravated [Unknown]
  - Blood pressure increased [Unknown]
  - Mobility decreased [Unknown]
  - Pruritus [Unknown]
